FAERS Safety Report 6940735-X (Version None)
Quarter: 2010Q3

REPORT INFORMATION
  Report Type: 
  Country: None (occurrence: None)
  Receive Date: 20100825
  Receipt Date: 20091020
  Transmission Date: 20110219
  Serious: No
  Sender: FDA-Public Use
  Company Number: US-MYLANLABS-2009S1018396

PATIENT
  Age: 50 Year
  Sex: Female
  Weight: 56.7 kg

DRUGS (3)
  1. TEMAZEPAM [Suspect]
     Route: 048
     Dates: start: 20091001
  2. XANAX [Concomitant]
     Indication: ANXIETY
     Route: 048
  3. LISINOPRIL [Concomitant]
     Indication: HYPERTENSION
     Route: 048
     Dates: start: 20090701

REACTIONS (2)
  - DRUG INEFFECTIVE [None]
  - INSOMNIA [None]
